FAERS Safety Report 5146291-3 (Version None)
Quarter: 2006Q4

REPORT INFORMATION
  Report Type: 
  Country: None (occurrence: None)
  Receive Date: 20061102
  Receipt Date: 20061027
  Transmission Date: 20070319
  Serious: Yes (Life-Threatening, Hospitalization)
  Sender: FDA-Public Use
  Company Number: E2020-00250-SPO-JP

PATIENT
  Age: 87 Year
  Sex: Female
  Weight: 48 kg

DRUGS (3)
  1. ARICEPT [Suspect]
     Indication: DEMENTIA ALZHEIMER'S TYPE
     Dosage: 5 MG, 1 IN 1 D, ORAL
     Route: 048
     Dates: start: 20040501, end: 20060728
  2. LASIX [Concomitant]
  3. CONIEL (BENIDIPINE HYDROCHLORIDE) [Concomitant]

REACTIONS (8)
  - ANAEMIA [None]
  - ECCHYMOSIS [None]
  - FALL [None]
  - HAEMORRHAGE SUBCUTANEOUS [None]
  - HAEMORRHAGIC DIATHESIS [None]
  - MEGAKARYOCYTES ABNORMAL [None]
  - MEGAKARYOCYTES DECREASED [None]
  - THROMBOCYTOPENIC PURPURA [None]
